FAERS Safety Report 10543994 (Version 1)
Quarter: 2014Q4

REPORT INFORMATION
  Report Type: Spontaneous
  Country: US (occurrence: None)
  Receive Date: 20141010
  Receipt Date: 20141010
  Transmission Date: 20150529
  Serious: No
  Sender: FDA-Public Use
  Company Number: 163-POMAL-14074322

PATIENT
  Age: 62 Year
  Sex: Female

DRUGS (8)
  1. WARFARIN [Concomitant]
     Active Substance: WARFARIN
  2. TAMOXIFEN [Concomitant]
     Active Substance: TAMOXIFEN
  3. POMALYST [Suspect]
     Active Substance: POMALIDOMIDE
     Indication: PLASMA CELL MYELOMA
     Route: 048
     Dates: start: 201403
  4. OXYCODONE [Concomitant]
     Active Substance: OXYCODONE
  5. METOPROLOL [Concomitant]
     Active Substance: METOPROLOL
  6. CALCIUM [Concomitant]
     Active Substance: CALCIUM
  7. HERCEPTIN [Concomitant]
     Active Substance: TRASTUZUMAB
  8. LINZESS [Concomitant]
     Active Substance: LINACLOTIDE

REACTIONS (2)
  - Alopecia [None]
  - Full blood count decreased [None]

NARRATIVE: CASE EVENT DATE: 2014
